FAERS Safety Report 10136446 (Version 1)
Quarter: 2014Q2

REPORT INFORMATION
  Report Type: Spontaneous
  Country: GB (occurrence: GB)
  Receive Date: 20140429
  Receipt Date: 20140429
  Transmission Date: 20141212
  Serious: Yes (Other)
  Sender: FDA-Public Use
  Company Number: GB-JNJFOC-20140417994

PATIENT
  Age: 18 Year
  Sex: Male

DRUGS (13)
  1. TRAMADOL HYDROCHLORIDE [Suspect]
     Indication: PAIN
     Route: 048
  2. TRAMADOL HYDROCHLORIDE [Suspect]
     Indication: PAIN
     Route: 048
  3. TRAMADOL HYDROCHLORIDE [Suspect]
     Indication: PAIN
     Route: 048
  4. MORPHINE [Suspect]
     Indication: PAIN
     Route: 048
  5. MORPHINE [Suspect]
     Indication: PAIN
     Route: 048
  6. MORPHINE [Suspect]
     Indication: PAIN
     Route: 048
  7. MORPHINE [Suspect]
     Indication: PAIN
     Route: 048
  8. MORPHINE [Suspect]
     Indication: PAIN
     Route: 042
  9. HYDROCORTISONE [Concomitant]
     Indication: PRODUCT USED FOR UNKNOWN INDICATION
     Route: 065
  10. HYDROCORTISONE [Concomitant]
     Indication: PRODUCT USED FOR UNKNOWN INDICATION
     Route: 065
  11. PARACETAMOL [Concomitant]
     Indication: PAIN
     Route: 065
  12. CODEINE [Concomitant]
     Indication: PAIN
     Route: 065
  13. CODEINE [Concomitant]
     Indication: PAIN
     Route: 065

REACTIONS (1)
  - Adrenal insufficiency [Recovered/Resolved]
